FAERS Safety Report 7673967-6 (Version None)
Quarter: 2011Q3

REPORT INFORMATION
  Report Type: 
  Country: None (occurrence: None)
  Receive Date: 20110810
  Receipt Date: 20110726
  Transmission Date: 20111222
  Serious: Yes (Hospitalization)
  Sender: FDA-Public Use
  Company Number: DE-US-EMD SERONO, INC.-7071123

PATIENT
  Sex: Female

DRUGS (1)
  1. REBIF [Suspect]
     Indication: MULTIPLE SCLEROSIS
     Route: 058
     Dates: start: 20110214

REACTIONS (5)
  - HYPOAESTHESIA [None]
  - MOTOR DYSFUNCTION [None]
  - GAIT DISTURBANCE [None]
  - LETHARGY [None]
  - CERVICAL SPINAL STENOSIS [None]
